FAERS Safety Report 4478829-3 (Version None)
Quarter: 2004Q4

REPORT INFORMATION
  Report Type: 
  Country: None (occurrence: None)
  Receive Date: 20041019
  Receipt Date: 20041013
  Transmission Date: 20050328
  Serious: Yes (Hospitalization, Other)
  Sender: FDA-Public Use
  Company Number: PHNU2004DE03515

PATIENT
  Sex: Male

DRUGS (3)
  1. CLOZARIL [Suspect]
     Indication: SCHIZOPHRENIA
     Dosage: UNKNOWN
     Route: 048
  2. CLOZARIL [Suspect]
     Dosage: 50 MG, BID
     Route: 048
  3. SOLIAN [Concomitant]
     Dosage: UNKNOWN
     Route: 048

REACTIONS (1)
  - LYMPHOMA [None]
